FAERS Safety Report 18753371 (Version 1)
Quarter: 2021Q1

REPORT INFORMATION
  Report Type: Report from Study
  Country: DE (occurrence: DE)
  Receive Date: 20210118
  Receipt Date: 20210118
  Transmission Date: 20210419
  Serious: Yes (Hospitalization, Other)
  Sender: FDA-Public Use
  Company Number: DE-BAXTER-2012BH003786

PATIENT
  Age: 53 Year
  Sex: Male
  Weight: 87 kg

DRUGS (65)
  1. ADVATE [Suspect]
     Active Substance: ANTIHEMOPHILIC FACTOR, HUMAN RECOMBINANT
     Indication: FACTOR VIII DEFICIENCY
     Dosage: 2000IU (INTERNATIONAL UNIT)3X A WEEK
     Route: 042
     Dates: start: 20071201
  2. ADVATE [Suspect]
     Active Substance: ANTIHEMOPHILIC FACTOR, HUMAN RECOMBINANT
     Dosage: 2000DOSAGE FORMS1X A DAY
     Route: 042
     Dates: end: 20120303
  3. ADVATE [Suspect]
     Active Substance: ANTIHEMOPHILIC FACTOR, HUMAN RECOMBINANT
     Dosage: AS NEEDED
     Route: 042
     Dates: start: 20120303
  4. ADVATE [Suspect]
     Active Substance: ANTIHEMOPHILIC FACTOR, HUMAN RECOMBINANT
     Dosage: AS NEEDED
     Route: 042
     Dates: start: 20120303
  5. ADVATE [Suspect]
     Active Substance: ANTIHEMOPHILIC FACTOR, HUMAN RECOMBINANT
     Dosage: 2000IU (INTERNATIONAL UNIT)
     Route: 042
     Dates: start: 20111220
  6. ADVATE [Suspect]
     Active Substance: ANTIHEMOPHILIC FACTOR, HUMAN RECOMBINANT
     Dosage: 2000IU (INTERNATIONAL UNIT)
     Route: 042
     Dates: start: 20111221
  7. ADVATE [Suspect]
     Active Substance: ANTIHEMOPHILIC FACTOR, HUMAN RECOMBINANT
     Dosage: 2000IU (INTERNATIONAL UNIT)
     Route: 042
     Dates: start: 20111223
  8. ADVATE [Suspect]
     Active Substance: ANTIHEMOPHILIC FACTOR, HUMAN RECOMBINANT
     Dosage: 2000IU (INTERNATIONAL UNIT)
     Route: 042
     Dates: start: 20111226
  9. ADVATE [Suspect]
     Active Substance: ANTIHEMOPHILIC FACTOR, HUMAN RECOMBINANT
     Dosage: 2000IU (INTERNATIONAL UNIT)
     Route: 042
     Dates: start: 20111226
  10. ADVATE [Suspect]
     Active Substance: ANTIHEMOPHILIC FACTOR, HUMAN RECOMBINANT
     Dosage: 3000IU (INTERNATIONAL UNIT)AS NEEDED
     Route: 042
     Dates: start: 20111229
  11. HYDROCHLOROTHIAZIDE. [Concomitant]
     Active Substance: HYDROCHLOROTHIAZIDE
     Indication: HYPERTENSION
     Dosage: 25MILLIGRAM1X A DAY
     Route: 048
     Dates: end: 201901
  12. RAMIPRIL. [Concomitant]
     Active Substance: RAMIPRIL
     Indication: HYPERTENSION
     Dosage: 10MILLIGRAM1X A DAY
     Route: 048
  13. COPEGUS [Concomitant]
     Active Substance: RIBAVIRIN
     Indication: ANTIVIRAL TREATMENT
     Dosage: 200 MILLIGRAM
     Route: 048
     Dates: start: 20120523, end: 20121113
  14. HYGROTON [Concomitant]
     Active Substance: CHLORTHALIDONE
     Indication: HYPERTENSION
     Dosage: 25 MICROGRAM
     Route: 048
     Dates: start: 201901, end: 202004
  15. ADVATE [Suspect]
     Active Substance: ANTIHEMOPHILIC FACTOR, HUMAN RECOMBINANT
     Indication: PROPHYLAXIS
     Dosage: 2000DOSAGE FORMS3X A WEEK
     Route: 042
  16. ADVATE [Suspect]
     Active Substance: ANTIHEMOPHILIC FACTOR, HUMAN RECOMBINANT
     Dosage: 3000DOSAGE FORMS1X A DAY
     Route: 042
     Dates: end: 20120225
  17. ADVATE [Suspect]
     Active Substance: ANTIHEMOPHILIC FACTOR, HUMAN RECOMBINANT
     Dosage: 2000IU (INTERNATIONAL UNIT)
     Route: 042
     Dates: start: 20111218
  18. ADVATE [Suspect]
     Active Substance: ANTIHEMOPHILIC FACTOR, HUMAN RECOMBINANT
     Dosage: 2000IU (INTERNATIONAL UNIT)
     Route: 042
     Dates: start: 20111221
  19. ADVATE [Suspect]
     Active Substance: ANTIHEMOPHILIC FACTOR, HUMAN RECOMBINANT
     Dosage: 3000IU (INTERNATIONAL UNIT)AS NEEDED
     Route: 042
     Dates: start: 20111230
  20. LERCANIDIPINE [Concomitant]
     Active Substance: LERCANIDIPINE
     Dosage: 5 UNK
     Dates: start: 202004
  21. ZOLMITRIPTAN. [Concomitant]
     Active Substance: ZOLMITRIPTAN
     Indication: MIGRAINE
     Dosage: 5 MICROGRAM
     Route: 048
     Dates: start: 202004
  22. ADVATE [Suspect]
     Active Substance: ANTIHEMOPHILIC FACTOR, HUMAN RECOMBINANT
     Indication: PROPHYLAXIS
     Dosage: 2000DOSAGE FORMS3X A WEEK
     Route: 042
  23. ADVATE [Suspect]
     Active Substance: ANTIHEMOPHILIC FACTOR, HUMAN RECOMBINANT
     Dosage: 2000IU (INTERNATIONAL UNIT)
     Route: 042
     Dates: start: 20111218
  24. ADVATE [Suspect]
     Active Substance: ANTIHEMOPHILIC FACTOR, HUMAN RECOMBINANT
     Dosage: 2000IU (INTERNATIONAL UNIT)
     Route: 042
     Dates: start: 20111228
  25. ADVATE [Suspect]
     Active Substance: ANTIHEMOPHILIC FACTOR, HUMAN RECOMBINANT
     Dosage: UNK
     Dates: start: 20111229
  26. ADVATE [Suspect]
     Active Substance: ANTIHEMOPHILIC FACTOR, HUMAN RECOMBINANT
     Dosage: UNK
     Dates: start: 20111230
  27. ADVATE [Suspect]
     Active Substance: ANTIHEMOPHILIC FACTOR, HUMAN RECOMBINANT
     Dosage: UNK
  28. ADVATE [Suspect]
     Active Substance: ANTIHEMOPHILIC FACTOR, HUMAN RECOMBINANT
     Dosage: UNK
  29. METFORMIN [Concomitant]
     Active Substance: METFORMIN HYDROCHLORIDE
     Indication: TYPE 2 DIABETES MELLITUS
     Dosage: 1000 MILLIGRAM
     Route: 048
     Dates: start: 201606, end: 201705
  30. CETIRIZIN [Concomitant]
     Active Substance: CETIRIZINE HYDROCHLORIDE
     Indication: HYPERSENSITIVITY
     Dosage: UNK
     Route: 048
     Dates: start: 201804
  31. ADVATE [Suspect]
     Active Substance: ANTIHEMOPHILIC FACTOR, HUMAN RECOMBINANT
     Indication: PROPHYLAXIS
     Dosage: 2000DOSAGE FORMS3X A WEEK
     Route: 042
  32. ADVATE [Suspect]
     Active Substance: ANTIHEMOPHILIC FACTOR, HUMAN RECOMBINANT
     Dosage: 2000IU (INTERNATIONAL UNIT)
     Route: 042
     Dates: start: 20111228
  33. ADVATE [Suspect]
     Active Substance: ANTIHEMOPHILIC FACTOR, HUMAN RECOMBINANT
     Dosage: 3000IU (INTERNATIONAL UNIT)AS NEEDED
     Route: 042
     Dates: start: 20111230
  34. ADVATE [Suspect]
     Active Substance: ANTIHEMOPHILIC FACTOR, HUMAN RECOMBINANT
     Dosage: 3000IU (INTERNATIONAL UNIT)AS NEEDED
     Route: 042
     Dates: start: 20111229
  35. ARCOXIA [Concomitant]
     Active Substance: ETORICOXIB
     Indication: ANALGESIC THERAPY
     Dosage: 60 MILLIGRAM
     Route: 048
     Dates: start: 20100902
  36. METFORMIN [Concomitant]
     Active Substance: METFORMIN HYDROCHLORIDE
     Dosage: 500 MICROGRAM
     Dates: start: 201705
  37. ADVATE [Suspect]
     Active Substance: ANTIHEMOPHILIC FACTOR, HUMAN RECOMBINANT
     Indication: FACTOR VIII DEFICIENCY
     Dosage: 2000IU (INTERNATIONAL UNIT)3X A WEEK
     Route: 042
     Dates: start: 20071201
  38. ADVATE [Suspect]
     Active Substance: ANTIHEMOPHILIC FACTOR, HUMAN RECOMBINANT
     Dosage: 3000DOSAGE FORMS1X A DAY
     Route: 042
     Dates: end: 20120225
  39. ADVATE [Suspect]
     Active Substance: ANTIHEMOPHILIC FACTOR, HUMAN RECOMBINANT
     Dosage: 2000IU (INTERNATIONAL UNIT)
     Route: 042
     Dates: start: 20111220
  40. ADVATE [Suspect]
     Active Substance: ANTIHEMOPHILIC FACTOR, HUMAN RECOMBINANT
     Dosage: 2000IU (INTERNATIONAL UNIT)
     Route: 042
     Dates: start: 20111221
  41. ADVATE [Suspect]
     Active Substance: ANTIHEMOPHILIC FACTOR, HUMAN RECOMBINANT
     Dosage: 2000IU (INTERNATIONAL UNIT)
     Route: 042
     Dates: start: 20111223
  42. ADVATE [Suspect]
     Active Substance: ANTIHEMOPHILIC FACTOR, HUMAN RECOMBINANT
     Dosage: 2000IU (INTERNATIONAL UNIT)
     Route: 042
     Dates: start: 20111223
  43. ADVATE [Suspect]
     Active Substance: ANTIHEMOPHILIC FACTOR, HUMAN RECOMBINANT
     Dosage: 2000IU (INTERNATIONAL UNIT)
     Route: 042
     Dates: start: 20111226
  44. ADVATE [Suspect]
     Active Substance: ANTIHEMOPHILIC FACTOR, HUMAN RECOMBINANT
     Dosage: 2000IU (INTERNATIONAL UNIT)
     Route: 042
     Dates: start: 20111228
  45. ADVATE [Suspect]
     Active Substance: ANTIHEMOPHILIC FACTOR, HUMAN RECOMBINANT
     Dosage: UNK
     Dates: start: 20111230
  46. INCIVO [Concomitant]
     Active Substance: TELAPREVIR
     Indication: ANTIVIRAL TREATMENT
     Dosage: 375 MICROGRAM
     Route: 048
     Dates: start: 20120523, end: 20120820
  47. OXIS [Concomitant]
     Active Substance: FORMOTEROL FUMARATE
     Indication: COUGH
     Dosage: 6 MICROGRAM
     Route: 050
     Dates: start: 20120611
  48. ADVATE [Suspect]
     Active Substance: ANTIHEMOPHILIC FACTOR, HUMAN RECOMBINANT
     Dosage: AS NEEDED
     Route: 042
     Dates: start: 20120303
  49. ADVATE [Suspect]
     Active Substance: ANTIHEMOPHILIC FACTOR, HUMAN RECOMBINANT
     Dosage: 2000IU (INTERNATIONAL UNIT)
     Route: 042
     Dates: start: 20111218
  50. ADVATE [Suspect]
     Active Substance: ANTIHEMOPHILIC FACTOR, HUMAN RECOMBINANT
     Dosage: 3000IU (INTERNATIONAL UNIT)AS NEEDED
     Route: 042
     Dates: start: 20111229
  51. ADVATE [Suspect]
     Active Substance: ANTIHEMOPHILIC FACTOR, HUMAN RECOMBINANT
     Dosage: UNK
     Dates: start: 20111229
  52. AMLODIPINE [Concomitant]
     Active Substance: AMLODIPINE BESYLATE
     Indication: HYPERTENSION
     Dosage: 5MILLIGRAM1X A DAY
     Route: 048
     Dates: end: 20120823
  53. LERCANIDIPINE [Concomitant]
     Active Substance: LERCANIDIPINE
     Indication: HYPERTENSION
     Dosage: 10 MICROGRAM
     Route: 048
     Dates: start: 201901, end: 202004
  54. TILIDIN [Concomitant]
     Active Substance: NALOXONE HYDROCHLORIDE\TILIDINE HYDROCHLORIDE
     Indication: MIGRAINE
     Dosage: UNK
     Route: 048
     Dates: start: 2018, end: 202004
  55. ADVATE [Suspect]
     Active Substance: ANTIHEMOPHILIC FACTOR, HUMAN RECOMBINANT
     Indication: FACTOR VIII DEFICIENCY
     Dosage: 2000IU (INTERNATIONAL UNIT)3X A WEEK
     Route: 042
     Dates: start: 20071201
  56. ADVATE [Suspect]
     Active Substance: ANTIHEMOPHILIC FACTOR, HUMAN RECOMBINANT
     Dosage: 3000DOSAGE FORMS1X A DAY
     Route: 042
     Dates: end: 20120225
  57. ADVATE [Suspect]
     Active Substance: ANTIHEMOPHILIC FACTOR, HUMAN RECOMBINANT
     Dosage: 2000DOSAGE FORMS1X A DAY
     Route: 042
     Dates: end: 20120303
  58. ADVATE [Suspect]
     Active Substance: ANTIHEMOPHILIC FACTOR, HUMAN RECOMBINANT
     Dosage: 2000DOSAGE FORMS1X A DAY
     Route: 042
     Dates: end: 20120303
  59. ADVATE [Suspect]
     Active Substance: ANTIHEMOPHILIC FACTOR, HUMAN RECOMBINANT
     Dosage: 2000IU (INTERNATIONAL UNIT)
     Route: 042
     Dates: start: 20111220
  60. ADVATE [Suspect]
     Active Substance: ANTIHEMOPHILIC FACTOR, HUMAN RECOMBINANT
     Dosage: UNK
     Dates: start: 20111229
  61. ADVATE [Suspect]
     Active Substance: ANTIHEMOPHILIC FACTOR, HUMAN RECOMBINANT
     Dosage: 3000IU (INTERNATIONAL UNIT)AS NEEDED
     Route: 042
     Dates: start: 20111230
  62. ADVATE [Suspect]
     Active Substance: ANTIHEMOPHILIC FACTOR, HUMAN RECOMBINANT
     Dosage: UNK
     Dates: start: 20111230
  63. ADVATE [Suspect]
     Active Substance: ANTIHEMOPHILIC FACTOR, HUMAN RECOMBINANT
     Dosage: UNK
  64. PEGASYS [Concomitant]
     Active Substance: PEGINTERFERON ALFA-2A
     Indication: ANTIVIRAL TREATMENT
     Dosage: 180 MICROGRAM, 1/WEEK
     Route: 065
     Dates: start: 20120524, end: 20121113
  65. NOVAMINSULFON [Concomitant]
     Active Substance: METAMIZOLE
     Indication: HEADACHE
     Dosage: UNK
     Route: 048

REACTIONS (2)
  - Renal cancer [Recovered/Resolved]
  - Renal oncocytoma [Unknown]

NARRATIVE: CASE EVENT DATE: 20120207
